FAERS Safety Report 8037323 (Version 4)
Quarter: 2013Q2

REPORT INFORMATION
  Report Type: Spontaneous
  Country: US (occurrence: US)
  Receive Date: 20110715
  Receipt Date: 20130621
  Transmission Date: 20140414
  Serious: Yes (Hospitalization)
  Sender: FDA-Public Use
  Company Number: US-GLAXOSMITHKLINE-A0834570A

PATIENT
  Age: 70 Year
  Sex: Male

DRUGS (5)
  1. COREG CR [Suspect]
     Indication: HYPERTENSION
     Dosage: 40MG PER DAY
     Route: 048
     Dates: start: 20110726
  2. CARVEDILOL [Suspect]
     Indication: HYPERTENSION
     Dosage: 6.5MG TWICE PER DAY
     Route: 048
     Dates: start: 1997, end: 1997
  3. CELLCEPT [Concomitant]
  4. NEORAL [Concomitant]
  5. AVAPRO [Concomitant]

REACTIONS (3)
  - Drug ineffective [Recovered/Resolved]
  - Hernia repair [Recovered/Resolved]
  - Anxiety [Recovered/Resolved]
